FAERS Safety Report 24949668 (Version 2)
Quarter: 2025Q4

REPORT INFORMATION
  Report Type: Report from Study
  Country: EU (occurrence: EU)
  Receive Date: 20250210
  Receipt Date: 20251112
  Transmission Date: 20260117
  Serious: Yes (Death, Other)
  Sender: TEVA
  Company Number: EU-TEVA-VS-3295548

PATIENT
  Age: 57 Year
  Sex: Male

DRUGS (22)
  1. LENALIDOMIDE [Suspect]
     Active Substance: LENALIDOMIDE
     Indication: Plasma cell myeloma
     Dosage: AS PART OF KRD REGIMEN
     Route: 065
  2. CYCLOPHOSPHAMIDE [Suspect]
     Active Substance: CYCLOPHOSPHAMIDE
     Indication: Plasma cell myeloma
     Dosage: AS PART OF HYPER-CVAD?REGIMEN
     Route: 065
  3. DEXAMETHASONE ACETATE [Suspect]
     Active Substance: DEXAMETHASONE ACETATE
     Indication: Plasma cell myeloma
     Dosage: AS PART OF SAR-442257 AND SVD?REGIMEN
     Route: 065
  4. DEXAMETHASONE ACETATE [Suspect]
     Active Substance: DEXAMETHASONE ACETATE
     Indication: Plasma cell myeloma
     Dosage: AS PART OF DVD?REGIMEN
     Route: 065
  5. DEXAMETHASONE ACETATE [Suspect]
     Active Substance: DEXAMETHASONE ACETATE
     Indication: Plasma cell myeloma
     Dosage: AS PART OF HYPER-CVAD?REGIMEN
     Route: 065
  6. DEXAMETHASONE ACETATE [Suspect]
     Active Substance: DEXAMETHASONE ACETATE
     Indication: Plasma cell myeloma
     Dosage: AS PART OF KRD REGIMEN
     Route: 065
  7. DEXAMETHASONE ACETATE [Suspect]
     Active Substance: DEXAMETHASONE ACETATE
     Indication: Plasma cell myeloma
     Dosage: AS PART OF VTD REGIMEN
     Route: 065
  8. DEXAMETHASONE ACETATE [Suspect]
     Active Substance: DEXAMETHASONE ACETATE
     Indication: Plasma cell myeloma
     Dosage: AS PART OF DPD REGIMEN
     Route: 065
  9. POMALIDOMIDE [Suspect]
     Active Substance: POMALIDOMIDE
     Indication: Plasma cell myeloma
     Dosage: AS PART OF DPD REGIMEN
     Route: 065
  10. BORTEZOMIB [Suspect]
     Active Substance: BORTEZOMIB
     Indication: Plasma cell myeloma
     Dosage: AS PART OF DVD?REGIMEN
     Route: 065
  11. BORTEZOMIB [Suspect]
     Active Substance: BORTEZOMIB
     Indication: Plasma cell myeloma
     Dosage: AS PART OF SVD?REGIMEN
     Route: 065
  12. BORTEZOMIB [Suspect]
     Active Substance: BORTEZOMIB
     Indication: Plasma cell myeloma
     Dosage: AS PART OF VTD REGIMEN
     Route: 065
  13. VINCRISTINE [Suspect]
     Active Substance: VINCRISTINE
     Indication: Plasma cell myeloma
     Dosage: AS PART OF HYPER-CVAD?REGIMEN
     Route: 065
  14. SAR-442257 [Suspect]
     Active Substance: SAR-442257
     Indication: Plasma cell myeloma
     Route: 065
  15. THALIDOMIDE [Suspect]
     Active Substance: THALIDOMIDE
     Indication: Plasma cell myeloma
     Dosage: AS PART OF VTD REGIMEN
     Route: 065
  16. ALNUCTAMAB [Suspect]
     Active Substance: ALNUCTAMAB
     Indication: Plasma cell myeloma
     Dosage: AS A PART OF DPD REGIMEN
     Route: 065
  17. TALQUETAMAB [Suspect]
     Active Substance: TALQUETAMAB
     Indication: Plasma cell myeloma
     Route: 065
  18. DOXORUBICIN [Suspect]
     Active Substance: DOXORUBICIN
     Indication: Plasma cell myeloma
     Dosage: AS PART OF HYPER-CVAD?REGIMEN
     Route: 065
  19. CARFILZOMIB [Suspect]
     Active Substance: CARFILZOMIB
     Indication: Plasma cell myeloma
     Dosage: AS PART OF KRD REGIMEN
     Route: 065
  20. DARATUMUMAB [Suspect]
     Active Substance: DARATUMUMAB
     Indication: Plasma cell myeloma
     Dosage: AS PART OF DPD REGIMEN
     Route: 065
  21. DARATUMUMAB [Suspect]
     Active Substance: DARATUMUMAB
     Indication: Plasma cell myeloma
     Dosage: AS PART OF DVD?REGIMEN
     Route: 065
  22. SELINEXOR [Suspect]
     Active Substance: SELINEXOR
     Indication: Plasma cell myeloma
     Dosage: AS PART OF SVD?REGIMEN
     Route: 065

REACTIONS (8)
  - Drug ineffective [Fatal]
  - Mucocutaneous toxicity [Unknown]
  - Xerosis [Unknown]
  - Nail dystrophy [Unknown]
  - Onycholysis [Unknown]
  - Dry mouth [Unknown]
  - Oral pain [Unknown]
  - Dysgeusia [Unknown]
